FAERS Safety Report 14379196 (Version 6)
Quarter: 2022Q1

REPORT INFORMATION
  Report Type: Spontaneous
  Country: FR (occurrence: FR)
  Receive Date: 20180112
  Receipt Date: 20220204
  Transmission Date: 20220423
  Serious: Yes (Hospitalization, Other)
  Sender: FDA-Public Use
  Company Number: FR-EMA-DD-20171228-NEGIEVPROD-111211

PATIENT
  Age: 85 Year
  Sex: Female
  Weight: 68 kg

DRUGS (9)
  1. NEBIVOLOL [Suspect]
     Active Substance: NEBIVOLOL
     Indication: Hypertension
     Dosage: UNK
     Route: 048
  2. ACETAMINOPHEN\TRAMADOL [Suspect]
     Active Substance: ACETAMINOPHEN\TRAMADOL
     Indication: Arthralgia
     Dosage: UNK
     Route: 048
  3. RILMENIDINE [Suspect]
     Active Substance: RILMENIDINE
     Indication: Hypertension
     Dosage: UNK
     Route: 048
     Dates: start: 2017
  4. PERINDOPRIL ARGININE [Suspect]
     Active Substance: PERINDOPRIL ARGININE
     Indication: Hypertension
     Dosage: UNK, EVERY NIGHT AROUND 07:00 PM
     Route: 048
     Dates: start: 2017
  5. PERINDOPRIL ARGININE [Suspect]
     Active Substance: PERINDOPRIL ARGININE
     Dosage: 5 MG, QD IN THE EVENING
     Route: 048
     Dates: start: 2016
  6. SPIRONOLACTONE [Suspect]
     Active Substance: SPIRONOLACTONE
     Indication: Hypertension
     Dosage: IN THE MORNING
     Route: 048
     Dates: start: 2016
  7. ALDACTAZINE [Concomitant]
     Active Substance: ALTHIAZIDE\SPIRONOLACTONE
     Indication: Hypertension
     Dosage: 1 DF, QD
     Route: 048
     Dates: start: 2016
  8. ASPIRIN [Concomitant]
     Active Substance: ASPIRIN
     Indication: Stent placement
     Dosage: 100 MG, QD
     Route: 065
  9. HYDROCHLOROTHIAZIDE\VALSARTAN [Concomitant]
     Active Substance: HYDROCHLOROTHIAZIDE\VALSARTAN
     Indication: Hypertension
     Dosage: UNK
     Route: 065

REACTIONS (20)
  - Cough [Not Recovered/Not Resolved]
  - Palpitations [Unknown]
  - Myalgia [Not Recovered/Not Resolved]
  - Labelled drug-drug interaction medication error [Unknown]
  - Fatigue [Unknown]
  - Nausea [Unknown]
  - Wrong schedule [Not Recovered/Not Resolved]
  - Dyspnoea [Unknown]
  - Vasculitis [Unknown]
  - Feeling hot [Unknown]
  - Arthralgia [Unknown]
  - Tachycardia [Unknown]
  - Abdominal pain [Unknown]
  - Drug ineffective [Unknown]
  - Diarrhoea [Unknown]
  - Asthma [Unknown]
  - Acute kidney injury [Unknown]
  - Urine output increased [Not Recovered/Not Resolved]
  - Medication error [Unknown]
  - Product use issue [Not Recovered/Not Resolved]

NARRATIVE: CASE EVENT DATE: 20160101
